FAERS Safety Report 4590900-4 (Version None)
Quarter: 2005Q1

REPORT INFORMATION
  Report Type: 
  Country: None (occurrence: None)
  Receive Date: 20050225
  Receipt Date: 20050106
  Transmission Date: 20050727
  Serious: No
  Sender: FDA-Public Use
  Company Number: US-GLAXOSMITHKLINE-A0539659A

PATIENT
  Age: 32 Year
  Sex: Male
  Weight: 73.6 kg

DRUGS (3)
  1. EPZICOM [Suspect]
     Indication: HIV INFECTION
     Dosage: 1TAB PER DAY
     Route: 048
     Dates: start: 20041223, end: 20050105
  2. EFAVIRENZ [Concomitant]
  3. TRAZODONE HCL [Concomitant]

REACTIONS (4)
  - ARTHRALGIA [None]
  - DYSPEPSIA [None]
  - FATIGUE [None]
  - RASH [None]
